FAERS Safety Report 19245679 (Version 1)
Quarter: 2021Q2

REPORT INFORMATION
  Report Type: Spontaneous
  Country: SG (occurrence: SG)
  Receive Date: 20210512
  Receipt Date: 20210512
  Transmission Date: 20210717
  Serious: Yes (Other)
  Sender: FDA-Public Use
  Company Number: SG-ASTELLAS-2021US016870

PATIENT

DRUGS (1)
  1. XOSPATA [Suspect]
     Active Substance: GILTERITINIB
     Indication: ACUTE MYELOID LEUKAEMIA
     Dosage: 3 DF (TOTAL 120MG), ONCE DAILY
     Route: 065

REACTIONS (2)
  - Volume blood decreased [Unknown]
  - Neutropenia [Unknown]
